FAERS Safety Report 9049175 (Version 1)
Quarter: 2013Q1

REPORT INFORMATION
  Report Type: Report from Study
  Country: BR (occurrence: BR)
  Receive Date: 20130205
  Receipt Date: 20130205
  Transmission Date: 20140127
  Serious: Yes (Hospitalization)
  Sender: FDA-Public Use
  Company Number: BR-ROCHE-1186927

PATIENT
  Sex: Female
  Weight: 79 kg

DRUGS (5)
  1. MABTHERA [Suspect]
     Indication: RHEUMATOID ARTHRITIS
     Route: 065
     Dates: start: 20110816
  2. METHOTREXATE [Concomitant]
     Route: 065
  3. DEFLAZACORT [Concomitant]
     Route: 065
  4. FAMOTIDINE [Concomitant]
     Route: 065
  5. CHLOROQUINE HYDROCHLORIDE [Concomitant]
     Route: 065

REACTIONS (1)
  - Gallbladder disorder [Unknown]
